FAERS Safety Report 10069409 (Version 2)
Quarter: 2014Q2

REPORT INFORMATION
  Report Type: Spontaneous
  Country: FR (occurrence: FR)
  Receive Date: 20140410
  Receipt Date: 20140410
  Transmission Date: 20141212
  Serious: Yes (Other)
  Sender: FDA-Public Use
  Company Number: FR-PFIZER INC-2014050375

PATIENT
  Age: 58 Year
  Sex: Male
  Weight: 78 kg

DRUGS (6)
  1. INLYTA [Suspect]
     Indication: RENAL CANCER METASTATIC
     Dosage: 5 MG, 2X/DAY
     Route: 048
     Dates: start: 201306
  2. KEPPRA [Concomitant]
     Indication: BRAIN NEOPLASM
     Dosage: 1500 MG, DAILY (IN 2 INTAKES PER DAY)
     Route: 048
     Dates: start: 2011
  3. BIPERIDYS [Concomitant]
     Indication: ABDOMINAL PAIN UPPER
     Dosage: 60 MG, DAILY (IN 3 INTAKES PER DAY)
     Route: 048
     Dates: start: 2011
  4. PARIET [Concomitant]
     Indication: ABDOMINAL PAIN UPPER
     Dosage: 40 MG, DAILY (IN 2 INTAKES PER DAY)
     Route: 048
     Dates: start: 2011
  5. XATRAL [Concomitant]
     Indication: PROSTATIC ADENOMA
     Dosage: 10 MG, DAILY (IN 1 INTAKE PER DAY)
     Route: 048
     Dates: start: 2011
  6. ZYLORIC [Concomitant]
     Indication: GOUT
     Dosage: 100 MG, DAILY (IN 1 INTAKE PER DAY)
     Route: 048
     Dates: start: 2011

REACTIONS (5)
  - Vomiting [Recovered/Resolved]
  - Diarrhoea [Recovered/Resolved]
  - Epilepsy [Unknown]
  - Decreased appetite [Not Recovered/Not Resolved]
  - Weight decreased [Not Recovered/Not Resolved]
